FAERS Safety Report 6743274-4 (Version None)
Quarter: 2010Q2

REPORT INFORMATION
  Report Type: 
  Country: None (occurrence: None)
  Receive Date: 20100527
  Receipt Date: 20100525
  Transmission Date: 20101027
  Serious: Yes (Other)
  Sender: FDA-Public Use
  Company Number: FR-SANOFI-AVENTIS-2010SA029825

PATIENT
  Age: 60 Year
  Sex: Female

DRUGS (3)
  1. ARAVA [Suspect]
     Indication: SPONDYLOARTHROPATHY
     Route: 048
     Dates: start: 20100201, end: 20100522
  2. FLUDEX [Concomitant]
     Indication: DIABETES INSIPIDUS
  3. POTASSIUM [Concomitant]
     Indication: HYPOKALAEMIA

REACTIONS (3)
  - DIABETES INSIPIDUS [None]
  - DIARRHOEA [None]
  - PARAESTHESIA [None]
